FAERS Safety Report 12990436 (Version 1)
Quarter: 2016Q4

REPORT INFORMATION
  Report Type: Spontaneous
  Country: JP (occurrence: JP)
  Receive Date: 20161201
  Receipt Date: 20161201
  Transmission Date: 20170207
  Serious: Yes (Other)
  Sender: FDA-Public Use
  Company Number: JP-G+W LABS-GW2016JP000186

PATIENT

DRUGS (4)
  1. ACETAMINOPHEN. [Suspect]
     Active Substance: ACETAMINOPHEN
     Indication: TONSILLITIS
  2. CARBOCYSTEINE [Suspect]
     Active Substance: CARBOCYSTEINE
     Indication: TONSILLITIS
     Dosage: UNK
     Route: 065
  3. GARENOXACIN MESYLATE [Suspect]
     Active Substance: GARENOXACIN MESYLATE
     Indication: TONSILLITIS
     Dosage: UNK
     Route: 065
  4. TRANEXAMIC ACID. [Suspect]
     Active Substance: TRANEXAMIC ACID
     Indication: TONSILLITIS
     Dosage: UNK
     Route: 065

REACTIONS (1)
  - Anaphylactic reaction [Recovered/Resolved]
